FAERS Safety Report 8284744-X (Version None)
Quarter: 2012Q2

REPORT INFORMATION
  Report Type: 
  Country: None (occurrence: None)
  Receive Date: 20120413
  Receipt Date: 20110623
  Transmission Date: 20120825
  Serious: No
  Sender: FDA-Public Use
  Company Number: US-ASTRAZENECA-2011SE38114

PATIENT
  Age: 84 Year
  Sex: Female
  Weight: 49.9 kg

DRUGS (1)
  1. NEXIUM [Suspect]
     Indication: ABDOMINAL PAIN UPPER
     Route: 048
     Dates: start: 20110616

REACTIONS (4)
  - DIARRHOEA [None]
  - OFF LABEL USE [None]
  - NAUSEA [None]
  - HEADACHE [None]
